FAERS Safety Report 18452338 (Version 1)
Quarter: 2020Q4

REPORT INFORMATION
  Report Type: Spontaneous
  Country: US (occurrence: US)
  Receive Date: 20201102
  Receipt Date: 20201102
  Transmission Date: 20210114
  Serious: Yes (Life-Threatening, Hospitalization)
  Sender: FDA-Public Use
  Company Number: US-BIO PRODUCTS LABORATORY LTD-2093506

PATIENT
  Age: 27 Year
  Sex: Male

DRUGS (2)
  1. GENERIC IVIG [Suspect]
     Active Substance: HUMAN IMMUNOGLOBULIN G
     Indication: MYASTHENIA GRAVIS
     Route: 042
  2. ORAL PREDNISOLONE [Concomitant]

REACTIONS (3)
  - Myasthenia gravis crisis [Unknown]
  - Respiratory failure [Unknown]
  - Off label use [Unknown]
